FAERS Safety Report 12807299 (Version 2)
Quarter: 2016Q4

REPORT INFORMATION
  Report Type: Spontaneous
  Country: US (occurrence: US)
  Receive Date: 20161004
  Receipt Date: 20161222
  Transmission Date: 20170207
  Serious: Yes (Other)
  Sender: FDA-Public Use
  Company Number: US-PFIZER INC-2016456485

PATIENT
  Age: 63 Year
  Sex: Female

DRUGS (20)
  1. SAVELLA [Concomitant]
     Active Substance: MILNACIPRAN HYDROCHLORIDE
  2. TOLTERODINE [Concomitant]
     Active Substance: TOLTERODINE
  3. PANTOPRAZOLE [Concomitant]
     Active Substance: PANTOPRAZOLE SODIUM
  4. METHOTREXATE. [Concomitant]
     Active Substance: METHOTREXATE
  5. RESTASIS [Concomitant]
     Active Substance: CYCLOSPORINE
  6. LISINOPRIL. [Concomitant]
     Active Substance: LISINOPRIL
  7. RANITIDINE. [Concomitant]
     Active Substance: RANITIDINE
  8. XELJANZ XR [Suspect]
     Active Substance: TOFACITINIB CITRATE
     Indication: RHEUMATOID ARTHRITIS
     Dosage: 11 MG, DAILY
     Route: 048
     Dates: start: 201607
  9. GABAPENTIN. [Concomitant]
     Active Substance: GABAPENTIN
  10. OXYCODONE [Concomitant]
     Active Substance: OXYCODONE
  11. ARMODAFINIL. [Concomitant]
     Active Substance: ARMODAFINIL
  12. PREMARIN [Concomitant]
     Active Substance: ESTROGENS, CONJUGATED
  13. TRAZODONE [Concomitant]
     Active Substance: TRAZODONE HYDROCHLORIDE
  14. FOLIC ACID. [Concomitant]
     Active Substance: FOLIC ACID
  15. MIRALAX [Concomitant]
     Active Substance: POLYETHYLENE GLYCOL 3350
  16. XELJANZ XR [Suspect]
     Active Substance: TOFACITINIB CITRATE
     Dosage: UNK
     Dates: start: 20160914
  17. LEVOTHYROXINE. [Concomitant]
     Active Substance: LEVOTHYROXINE
  18. PREDNISONE. [Concomitant]
     Active Substance: PREDNISONE
  19. CYCLOBENZAPRINE [Concomitant]
     Active Substance: CYCLOBENZAPRINE
  20. NUVIGIL [Concomitant]
     Active Substance: ARMODAFINIL

REACTIONS (7)
  - Mucosal inflammation [Not Recovered/Not Resolved]
  - Visual impairment [Unknown]
  - Vision blurred [Unknown]
  - Peripheral swelling [Not Recovered/Not Resolved]
  - Diplopia [Unknown]
  - Rotator cuff syndrome [Recovered/Resolved]
  - Condition aggravated [Not Recovered/Not Resolved]

NARRATIVE: CASE EVENT DATE: 20160830
